FAERS Safety Report 16244260 (Version 5)
Quarter: 2021Q3

REPORT INFORMATION
  Report Type: Spontaneous
  Country: NL (occurrence: NL)
  Receive Date: 20190426
  Receipt Date: 20210712
  Transmission Date: 20211014
  Serious: Yes (Other)
  Sender: FDA-Public Use
  Company Number: NL-MYLANLABS-2019M1038143

PATIENT
  Age: 77 Year
  Sex: Male

DRUGS (35)
  1. METOPROLOL. [Suspect]
     Active Substance: METOPROLOL
     Dosage: 2 TABLETS IN THE MORNING AND 1 IN THE EVENING, TWICE DAILY
     Route: 065
  2. METOPROLOL. [Suspect]
     Active Substance: METOPROLOL
     Dosage: 50 MG QD; (50 MG, 1 IN 1 D)
  3. DIGOXIN. [Suspect]
     Active Substance: DIGOXIN
     Dosage: 0.13 MG QD
  4. PANTOPRAZOLE                       /01263204/ [Concomitant]
     Active Substance: PANTOPRAZOLE SODIUM
     Dosage: REDUCED
     Route: 065
  5. ISOSORBIDE MONONITRATE. [Concomitant]
     Active Substance: ISOSORBIDE MONONITRATE
     Indication: PRODUCT USED FOR UNKNOWN INDICATION
     Dosage: 25 MILLIGRAM, QD (25 MG, 1X/DAY)
     Route: 065
  6. TOLBUTAMIDE. [Concomitant]
     Active Substance: TOLBUTAMIDE
     Dosage: 500 MG, BID
     Route: 065
  7. METOPROLOL. [Suspect]
     Active Substance: METOPROLOL
     Dosage: 50 MG QD; (50 MG, 1 IN 1 D)
  8. DIGOXIN. [Suspect]
     Active Substance: DIGOXIN
     Dosage: 0.13 MG QD
  9. PANTOPRAZOLE                       /01263204/ [Concomitant]
     Active Substance: PANTOPRAZOLE SODIUM
     Indication: PRODUCT USED FOR UNKNOWN INDICATION
     Dosage: 40 MILLIGRAM, QD (40 MG, 1X/DAY)
     Route: 065
  10. METOPROLOL. [Suspect]
     Active Substance: METOPROLOL
     Dosage: 50 MG, ONCE DAILY
     Route: 065
  11. METOPROLOL. [Suspect]
     Active Substance: METOPROLOL
     Dosage: 2 DF IN THE MORNING, 1 DF IN THE EVENING
  12. DIGOXIN. [Suspect]
     Active Substance: DIGOXIN
     Dosage: 0.13 MILLIGRAM, QD (0.13 MG, 1X/DAY) (0.125 MG, ONCE DAILY)
     Route: 065
  13. DIGOXIN. [Suspect]
     Active Substance: DIGOXIN
     Dosage: 0.13 MG QD
  14. DIGOXIN. [Suspect]
     Active Substance: DIGOXIN
     Dosage: 0.062 MG QD
  15. DIGOXIN. [Suspect]
     Active Substance: DIGOXIN
     Dosage: 0.125 MG, QD (0.13 MG,1 IN 1 D)
  16. ATORVASTATIN [Concomitant]
     Active Substance: ATORVASTATIN
     Indication: PRODUCT USED FOR UNKNOWN INDICATION
     Dosage: 40 MILLIGRAM, QD (40 MG, 1X/DAY)
     Route: 065
  17. METOPROLOL. [Suspect]
     Active Substance: METOPROLOL
     Dosage: 2 TABLETS IN THE MORNING AND 1 IN THE EVENING;TWICE DAILY
  18. METFORMIN HCL [Concomitant]
     Active Substance: METFORMIN HYDROCHLORIDE
     Dosage: 500 MILLIGRAM, Q8H, 500 MG, TID
     Route: 065
  19. DIGOXIN. [Suspect]
     Active Substance: DIGOXIN
     Dosage: 0.125 MG, QD
     Route: 065
  20. DIGOXIN. [Suspect]
     Active Substance: DIGOXIN
     Dosage: 0.062 MG QD
  21. DABIGATRAN [Concomitant]
     Active Substance: DABIGATRAN
     Indication: PRODUCT USED FOR UNKNOWN INDICATION
     Dosage: 300 MILLIGRAM, QD (300 MG, 1X/DAY), 150 MG, BID
     Route: 065
     Dates: start: 2014
  22. TOLBUTAMIDE. [Concomitant]
     Active Substance: TOLBUTAMIDE
     Indication: PRODUCT USED FOR UNKNOWN INDICATION
     Dosage: 1000 MILLIGRAM, QD (1000 MG, 1X/DAY)
     Route: 065
  23. METFORMIN HCL [Concomitant]
     Active Substance: METFORMIN HYDROCHLORIDE
     Indication: PRODUCT USED FOR UNKNOWN INDICATION
     Dosage: 1500 MILLIGRAM, QD (1500 MG, 1X/DAY)
     Route: 065
  24. METOPROLOL. [Suspect]
     Active Substance: METOPROLOL
     Indication: PRODUCT USED FOR UNKNOWN INDICATION
     Dosage: 100 MILLIGRAM, QD (50 MG, 2X/DAY (IN THE MORNING AND IN THE EVENING)
     Route: 065
  25. METOPROLOL. [Suspect]
     Active Substance: METOPROLOL
     Dosage: 50 MG, QD
  26. METOPROLOL. [Suspect]
     Active Substance: METOPROLOL
     Dosage: 500 MG, Q12H; (500 MG, QD (2 DF IN THE MORNING, 1 DF IN THE EVENING) (500 MG 1 IN 12 HR))
  27. DIPYRIDAMOLE. [Suspect]
     Active Substance: DIPYRIDAMOLE
     Indication: PRODUCT USED FOR UNKNOWN INDICATION
     Dosage: 200 MILLIGRAM, QD (200 MG, 1X/DAY)
     Route: 065
  28. PARACETAMOL [Concomitant]
     Active Substance: ACETAMINOPHEN
     Indication: PRODUCT USED FOR UNKNOWN INDICATION
     Dosage: UNK
     Route: 065
  29. TAMSULOSIN [Suspect]
     Active Substance: TAMSULOSIN
     Indication: PRODUCT USED FOR UNKNOWN INDICATION
     Dosage: 0.4 MILLIGRAM, QD (0.4 MG, 1X/DAY (1 UNIT))
     Route: 065
  30. DIGOXIN. [Suspect]
     Active Substance: DIGOXIN
     Indication: PRODUCT USED FOR UNKNOWN INDICATION
     Dosage: 0.06 MILLIGRAM, QD (0.06 MG, 1X/DAY) (0.062 MG, ONCE DAILY)
     Route: 065
  31. DIGOXIN. [Suspect]
     Active Substance: DIGOXIN
     Dosage: 0.062 MG QD
  32. PANTOPRAZOLE                       /01263204/ [Concomitant]
     Active Substance: PANTOPRAZOLE SODIUM
     Dosage: 80 MG, QD TEMPORARILY DOUBLE THE DOSE OF PANTOPRAZOLE
     Route: 065
  33. CALCIUM +D3 [Concomitant]
     Active Substance: CALCIUM\CHOLECALCIFEROL
     Indication: PRODUCT USED FOR UNKNOWN INDICATION
     Dosage: UNK UNK, QD (500MG/800 IU, 1X/DAY)
     Route: 065
  34. METOPROLOL. [Suspect]
     Active Substance: METOPROLOL
     Dosage: 500 MG, Q12H (DF IN THE MORNING, 1 DF IN THE EVENING)
  35. DIGOXIN. [Suspect]
     Active Substance: DIGOXIN
     Dosage: 0.125 MG, QD (0.13 MG,1 IN 1 D)

REACTIONS (4)
  - Cognitive disorder [Not Recovered/Not Resolved]
  - Gastric disorder [Recovered/Resolved]
  - Drug ineffective [Unknown]
  - Dizziness [Recovering/Resolving]
